FAERS Safety Report 22520484 (Version 1)
Quarter: 2023Q2

REPORT INFORMATION
  Report Type: Spontaneous
  Country: NO (occurrence: NO)
  Receive Date: 20230605
  Receipt Date: 20230605
  Transmission Date: 20230722
  Serious: Yes (Hospitalization, Other)
  Sender: FDA-Public Use
  Company Number: None

PATIENT
  Age: 24 Year
  Sex: Male
  Weight: 69 kg

DRUGS (4)
  1. ABILIFY MAINTENA [Suspect]
     Active Substance: ARIPIPRAZOLE
     Indication: Psychotic disorder
     Dosage: 75 MG 1 TIMES EVERY 4 WEEKS
     Route: 030
     Dates: start: 2015
  2. FISH OIL [Concomitant]
     Active Substance: FISH OIL
     Indication: Product used for unknown indication
     Dosage: UNK
     Route: 065
  3. PROTEIN [Concomitant]
     Active Substance: PROTEIN
     Indication: Product used for unknown indication
     Dosage: UNK
     Route: 065
  4. CREATINE MONOHYDRATE [Concomitant]
     Active Substance: CREATINE MONOHYDRATE
     Indication: Product used for unknown indication
     Dosage: UNK
     Route: 065

REACTIONS (17)
  - Impaired quality of life [Recovering/Resolving]
  - Heart rate irregular [Recovered/Resolved with Sequelae]
  - Paranoia [Recovered/Resolved with Sequelae]
  - Movement disorder [Recovering/Resolving]
  - Joint stiffness [Recovering/Resolving]
  - Increased appetite [Recovering/Resolving]
  - Erectile dysfunction [Unknown]
  - Diarrhoea [Recovering/Resolving]
  - Restlessness [Recovered/Resolved with Sequelae]
  - Insomnia [Recovering/Resolving]
  - Food craving [Unknown]
  - Sensory loss [Unknown]
  - Malaise [Unknown]
  - Injection site rash [Unknown]
  - Alcohol use [Unknown]
  - Loss of employment [Unknown]
  - Product use in unapproved indication [Unknown]

NARRATIVE: CASE EVENT DATE: 20150101
